FAERS Safety Report 4699768-9 (Version None)
Quarter: 2005Q2

REPORT INFORMATION
  Report Type: 
  Country: None (occurrence: None)
  Receive Date: 20050126
  Receipt Date: 20050126
  Transmission Date: 20051028
  Serious: Yes (Other)
  Sender: FDA-Public Use
  Company Number: None

PATIENT
  Age: 44 Year
  Sex: Male
  Weight: 105.6881 kg

DRUGS (1)
  1. GLYNASE [Suspect]
     Indication: DIABETES MELLITUS NON-INSULIN-DEPENDENT
     Dosage: 1 + 1/2 TAB PO QD  LIFETIME
     Route: 048

REACTIONS (1)
  - NAUSEA [None]
